FAERS Safety Report 23561977 (Version 2)
Quarter: 2024Q2

REPORT INFORMATION
  Report Type: Spontaneous
  Country: US (occurrence: US)
  Receive Date: 20240225
  Receipt Date: 20240531
  Transmission Date: 20240716
  Serious: No
  Sender: FDA-Public Use
  Company Number: US-GRANULES-US-2024GRASPO00034

PATIENT
  Sex: Female

DRUGS (2)
  1. IBUPROFEN [Suspect]
     Active Substance: IBUPROFEN
     Indication: Swelling
     Dosage: SOLID
     Route: 048
  2. DURICEF [Concomitant]
     Active Substance: CEFADROXIL
     Route: 065

REACTIONS (3)
  - Cellulitis [Unknown]
  - Rash [Unknown]
  - Peripheral swelling [Unknown]
